FAERS Safety Report 19589709 (Version 2)
Quarter: 2021Q3

REPORT INFORMATION
  Report Type: Spontaneous
  Country: DE (occurrence: DE)
  Receive Date: 20210721
  Receipt Date: 20210804
  Transmission Date: 20211014
  Serious: Yes (Other)
  Sender: FDA-Public Use
  Company Number: DE-MYLANLABS-2021M1043295

PATIENT
  Sex: Male

DRUGS (3)
  1. PREGABALIN. [Suspect]
     Active Substance: PREGABALIN
     Indication: DRUG DETOXIFICATION
     Dosage: 75 MILLIGRAM, QD(TAKEN OVER A LITTLE MORE THAN 6 MONTHS)
     Route: 048
     Dates: start: 2020
  2. ALPRAZOLAM. [Interacting]
     Active Substance: ALPRAZOLAM
     Indication: PRODUCT USED FOR UNKNOWN INDICATION
     Dosage: UNK
     Route: 048
     Dates: start: 2020
  3. PREGABALIN. [Interacting]
     Active Substance: PREGABALIN
     Dosage: 200 MG, QD (MAX AND SUBSEQUENTLY REDUCED TO DAILY DOSE OF 200MG)
     Route: 048

REACTIONS (10)
  - General physical health deterioration [Not Recovered/Not Resolved]
  - Off label use [Unknown]
  - Cognitive disorder [Unknown]
  - Drug interaction [Unknown]
  - Mental impairment [Not Recovered/Not Resolved]
  - Body temperature decreased [Not Recovered/Not Resolved]
  - Emotional disorder [Unknown]
  - Headache [Not Recovered/Not Resolved]
  - Hot flush [Not Recovered/Not Resolved]
  - Chills [Not Recovered/Not Resolved]
